FAERS Safety Report 21229997 (Version 2)
Quarter: 2022Q3

REPORT INFORMATION
  Report Type: Spontaneous
  Country: NL (occurrence: NL)
  Receive Date: 20220818
  Receipt Date: 20220902
  Transmission Date: 20221027
  Serious: Yes (Death, Hospitalization)
  Sender: FDA-Public Use
  Company Number: NL-TEVA-2022-NL-2064400

PATIENT
  Age: 65 Year
  Sex: Male

DRUGS (2)
  1. AZATHIOPRINE [Suspect]
     Active Substance: AZATHIOPRINE
     Indication: Crohn^s disease
     Route: 065
  2. PREDNISOLONE [Suspect]
     Active Substance: PREDNISOLONE
     Indication: Crohn^s disease
     Dosage: 40 MILLIGRAM DAILY;
     Route: 065

REACTIONS (7)
  - Diffuse large B-cell lymphoma [Fatal]
  - Epstein-Barr virus infection reactivation [Fatal]
  - Acute kidney injury [Fatal]
  - Oliguria [Fatal]
  - Acidosis [Fatal]
  - Respiratory failure [Fatal]
  - Multiple organ dysfunction syndrome [Fatal]
